FAERS Safety Report 9259092 (Version 2)
Quarter: 2013Q2

REPORT INFORMATION
  Report Type: Spontaneous
  Country: JP (occurrence: JP)
  Receive Date: 20130426
  Receipt Date: 20130517
  Transmission Date: 20140414
  Serious: Yes (Life-Threatening)
  Sender: FDA-Public Use
  Company Number: JP-PFIZER INC-2013128878

PATIENT
  Age: 26 Year
  Sex: Female

DRUGS (8)
  1. ZITHROMAC [Suspect]
     Indication: NASOPHARYNGITIS
     Dosage: 500 MG DAILY
     Route: 048
     Dates: start: 20130420, end: 20130422
  2. ZITHROMAC [Suspect]
     Indication: PYREXIA
  3. OPHIOPOGONIS TUBER [Concomitant]
     Dosage: UNK
  4. SOLANTAL [Concomitant]
     Dosage: UNK
  5. MUCODYNE [Concomitant]
     Dosage: UNK
  6. HUSCODE [Concomitant]
     Dosage: UNK
     Route: 048
  7. APRICOT KERNEL WATER [Concomitant]
     Dosage: UNK
  8. BROCIN [Concomitant]
     Dosage: UNK

REACTIONS (4)
  - Syncope [Recovered/Resolved]
  - Road traffic accident [Recovered/Resolved]
  - Drooling [Recovered/Resolved]
  - Urinary incontinence [Recovered/Resolved]
